FAERS Safety Report 4728114-7 (Version None)
Quarter: 2005Q3

REPORT INFORMATION
  Report Type: 
  Country: None (occurrence: None)
  Receive Date: 20050729
  Receipt Date: 20050721
  Transmission Date: 20060218
  Serious: Yes (Life-Threatening, Hospitalization, Other)
  Sender: FDA-Public Use
  Company Number: PHNU2005DE02619

PATIENT
  Age: 56 Year
  Sex: Male
  Weight: 66 kg

DRUGS (4)
  1. SANDIMMUNE [Suspect]
     Indication: RENAL TRANSPLANT
     Route: 048
     Dates: start: 19970202, end: 20040401
  2. CELLCEPT [Concomitant]
     Indication: IMMUNOSUPPRESSION
     Dates: start: 19970202, end: 20010401
  3. DECORTIN [Concomitant]
     Indication: IMMUNOSUPPRESSION
     Dates: start: 19970202
  4. PROGRAF [Concomitant]
     Indication: IMMUNOSUPPRESSION
     Dates: start: 20040401

REACTIONS (9)
  - AORTIC VALVE INCOMPETENCE [None]
  - ARRHYTHMIA [None]
  - CARDIAC FAILURE [None]
  - CORONARY ARTERY DISEASE [None]
  - GLOMERULONEPHROPATHY [None]
  - MITRAL VALVE INCOMPETENCE [None]
  - SQUAMOUS CELL CARCINOMA [None]
  - URINARY TRACT INFECTION [None]
  - UROSEPSIS [None]
